FAERS Safety Report 4473843-6 (Version None)
Quarter: 2004Q4

REPORT INFORMATION
  Report Type: 
  Country: None (occurrence: None)
  Receive Date: 20041008
  Receipt Date: 20041008
  Transmission Date: 20050328
  Serious: Yes (Disabling, Other)
  Sender: FDA-Public Use
  Company Number: None

PATIENT
  Age: 52 Year
  Sex: Female
  Weight: 108.8633 kg

DRUGS (2)
  1. VIOXX [Suspect]
     Indication: ARTHRITIS
     Dosage: 25 MG 1 PER DAY
  2. VIOXX [Suspect]
     Indication: ARTHRITIS
     Dosage: 50 MG SAMPLE PACK

REACTIONS (4)
  - ANXIETY [None]
  - CHEST PAIN [None]
  - FEAR [None]
  - SLEEP DISORDER [None]
